FAERS Safety Report 5466916-2 (Version None)
Quarter: 2007Q3

REPORT INFORMATION
  Report Type: 
  Country: None (occurrence: None)
  Receive Date: 20070921
  Receipt Date: 20070921
  Transmission Date: 20080115
  Serious: Yes (Hospitalization)
  Sender: FDA-Public Use
  Company Number: None

PATIENT
  Age: 59 Year
  Sex: Female
  Weight: 62.5964 kg

DRUGS (6)
  1. PROMETHAZINE [Suspect]
     Indication: VOMITING
     Dosage: 25 MG EVERY 4 HOURS PRN PO
     Route: 048
     Dates: start: 20070912, end: 20070912
  2. MORPHINE [Concomitant]
  3. PROMETHAZINE [Concomitant]
  4. MEGACE [Concomitant]
  5. OXYCODONE HCL [Concomitant]
  6. PAROXETINE HCL [Concomitant]

REACTIONS (15)
  - AGITATION [None]
  - BLOOD POTASSIUM DECREASED [None]
  - BLOOD PRESSURE INCREASED [None]
  - CONFUSIONAL STATE [None]
  - DEHYDRATION [None]
  - HYPOKALAEMIA [None]
  - HYPOTHYROIDISM [None]
  - LIVEDO RETICULARIS [None]
  - NEUROLEPTIC MALIGNANT SYNDROME [None]
  - PNEUMONIA [None]
  - RESPIRATORY RATE INCREASED [None]
  - SINUS TACHYCARDIA [None]
  - SPEECH DISORDER [None]
  - TREMOR [None]
  - WHITE BLOOD CELL COUNT INCREASED [None]
